FAERS Safety Report 13343330 (Version 1)
Quarter: 2017Q1

REPORT INFORMATION
  Report Type: Spontaneous
  Country: US (occurrence: US)
  Receive Date: 20170316
  Receipt Date: 20170316
  Transmission Date: 20170428
  Serious: Yes (Hospitalization, Other)
  Sender: FDA-Public Use
  Company Number: US-MUNDIPHARMA DS AND PHARMACOVIGILANCE-USA-2017-0137162

PATIENT
  Age: 43 Year
  Sex: Female

DRUGS (1)
  1. OXYCONTIN [Suspect]
     Active Substance: OXYCODONE HYDROCHLORIDE
     Indication: DRUG ABUSE
     Dosage: 60 MG, UNK
     Route: 042

REACTIONS (4)
  - Drug abuse [Unknown]
  - Thrombocytopenia [Recovered/Resolved]
  - Abdominal pain [Unknown]
  - Haemolysis [Recovered/Resolved]
